FAERS Safety Report 8083908-8 (Version None)
Quarter: 2012Q1

REPORT INFORMATION
  Report Type: 
  Country: None (occurrence: None)
  Receive Date: 20120128
  Receipt Date: 20110112
  Transmission Date: 20120608
  Serious: No
  Sender: FDA-Public Use
  Company Number: US-ABBOTT-11P-163-0697235-00

PATIENT
  Age: 38 Year
  Sex: Female

DRUGS (2)
  1. HUMIRA [Suspect]
     Indication: CROHN'S DISEASE
     Dates: start: 20091101, end: 20110110
  2. GABAPENTIN [Concomitant]
     Indication: PRODUCT USED FOR UNKNOWN INDICATION
     Dosage: POSSIBLE SIDE EFFECTS OF RECURRENT COLD
     Dates: end: 20101201

REACTIONS (5)
  - WHITE BLOOD CELL COUNT INCREASED [None]
  - ARTHRALGIA [None]
  - OROPHARYNGEAL PAIN [None]
  - MELANOCYTIC NAEVUS [None]
  - SINUSITIS [None]
